FAERS Safety Report 8554565-9 (Version None)
Quarter: 2012Q3

REPORT INFORMATION
  Report Type: 
  Country: None (occurrence: None)
  Receive Date: 20120731
  Receipt Date: 20120724
  Transmission Date: 20120928
  Serious: Yes (Other)
  Sender: FDA-Public Use
  Company Number: JP-009507513-1207JPN010270

PATIENT

DRUGS (9)
  1. PEG-INTRON [Suspect]
     Indication: HEPATITIS C
     Route: 058
     Dates: start: 20120410, end: 20120717
  2. MUCOSTA [Concomitant]
     Route: 048
     Dates: start: 20120301
  3. FAMOTIDINE [Concomitant]
     Route: 048
     Dates: start: 20120301
  4. LOXONIN [Concomitant]
     Route: 048
     Dates: start: 20120301
  5. AMLODIPINE BESYLATE [Concomitant]
     Indication: HYPERTENSION
     Route: 048
     Dates: start: 20120101
  6. SITAGLIPTIN PHOSPHATE [Concomitant]
     Route: 048
     Dates: start: 20120101
  7. ALDOMET [Concomitant]
     Route: 048
     Dates: start: 20120301
  8. REBETOL [Suspect]
     Indication: HEPATITIS C
     Route: 048
     Dates: start: 20120410, end: 20120723
  9. URSO 250 [Concomitant]
     Route: 048
     Dates: start: 20120201

REACTIONS (1)
  - ALANINE AMINOTRANSFERASE INCREASED [None]
